FAERS Safety Report 16160200 (Version 6)
Quarter: 2020Q3

REPORT INFORMATION
  Report Type: Spontaneous
  Country: US (occurrence: US)
  Receive Date: 20190404
  Receipt Date: 20200818
  Transmission Date: 20201102
  Serious: Yes (Hospitalization)
  Sender: FDA-Public Use
  Company Number: US-ACTELION-A-NJ2019-187214

PATIENT
  Sex: Male
  Weight: 15.87 kg

DRUGS (2)
  1. TRACLEER [Suspect]
     Active Substance: BOSENTAN
     Indication: PULMONARY ARTERIAL HYPERTENSION
     Dosage: 62.5 MG, BID
     Route: 048
     Dates: start: 20200101
  2. REVATIO [Concomitant]
     Active Substance: SILDENAFIL CITRATE
     Dosage: 20 MG

REACTIONS (5)
  - Infection [Unknown]
  - Pneumonia [Recovering/Resolving]
  - Unevaluable event [Unknown]
  - Rhinovirus infection [Unknown]
  - Surgery [Unknown]
